FAERS Safety Report 16689217 (Version 3)
Quarter: 2019Q3

REPORT INFORMATION
  Report Type: Spontaneous
  Country: US (occurrence: US)
  Receive Date: 20190809
  Receipt Date: 20190822
  Transmission Date: 20191004
  Serious: Yes (Other)
  Sender: FDA-Public Use
  Company Number: US-AMGEN-USASP2019125791

PATIENT
  Age: 59 Year
  Sex: Female
  Weight: 79.82 kg

DRUGS (3)
  1. ENBREL [Suspect]
     Active Substance: ETANERCEPT
     Indication: RHEUMATOID ARTHRITIS
     Dosage: 50 MILLIGRAM, QWK
     Route: 065
     Dates: start: 201901, end: 201902
  2. MELOXICAM. [Concomitant]
     Active Substance: MELOXICAM
     Dosage: 15 MILLIGRAM, AS NECESSARY
     Route: 048
     Dates: start: 20160609, end: 201903
  3. TOPIRAMATE. [Concomitant]
     Active Substance: TOPIRAMATE
     Dosage: 50 MILLIGRAM, BID
     Route: 048

REACTIONS (25)
  - Constipation [Recovering/Resolving]
  - Injection site erythema [Recovered/Resolved]
  - Insomnia [Unknown]
  - Joint swelling [Unknown]
  - Synovitis [Not Recovered/Not Resolved]
  - Migraine [Not Recovered/Not Resolved]
  - Tinnitus [Not Recovered/Not Resolved]
  - Intracranial mass [Recovering/Resolving]
  - Deafness unilateral [Unknown]
  - Memory impairment [Recovered/Resolved]
  - Irritability [Unknown]
  - Restlessness [Unknown]
  - Asthenia [Unknown]
  - Injection site swelling [Recovered/Resolved]
  - Dysarthria [Recovered/Resolved]
  - Feeling jittery [Unknown]
  - Decreased appetite [Unknown]
  - Fatigue [Recovered/Resolved]
  - Arthralgia [Unknown]
  - Tendonitis [Unknown]
  - Urine odour abnormal [Unknown]
  - Night sweats [Unknown]
  - Joint stiffness [Unknown]
  - Affective disorder [Recovering/Resolving]
  - Joint warmth [Unknown]

NARRATIVE: CASE EVENT DATE: 2019
